FAERS Safety Report 11934185 (Version 1)
Quarter: 2016Q1

REPORT INFORMATION
  Report Type: Spontaneous
  Country: US (occurrence: None)
  Receive Date: 20160120
  Receipt Date: 20160120
  Transmission Date: 20160526
  Serious: Yes (Other)
  Sender: FDA-Public Use
  Company Number: None

PATIENT
  Age: 46 Year
  Sex: Female
  Weight: 129.28 kg

DRUGS (10)
  1. BACLOFEN. [Concomitant]
     Active Substance: BACLOFEN
  2. MELOXICAM. [Concomitant]
     Active Substance: MELOXICAM
  3. COPAXONE [Suspect]
     Active Substance: GLATIRAMER ACETATE
     Indication: MULTIPLE SCLEROSIS
     Route: 058
     Dates: start: 20160104, end: 20160104
  4. TOPIRAMATE. [Concomitant]
     Active Substance: TOPIRAMATE
  5. LORATADINE. [Concomitant]
     Active Substance: LORATADINE
  6. GABAPENTIN. [Concomitant]
     Active Substance: GABAPENTIN
  7. CITALIPRAM [Concomitant]
  8. SUMATRIPTAN. [Concomitant]
     Active Substance: SUMATRIPTAN
  9. MODIFINIL [Concomitant]
  10. VITAMIN D3 [Concomitant]
     Active Substance: CHOLECALCIFEROL

REACTIONS (8)
  - Injection site pain [None]
  - Underdose [None]
  - Injection site erythema [None]
  - Peripheral swelling [None]
  - Muscle spasms [None]
  - Pain [None]
  - Injection site pruritus [None]
  - Wrong technique in product usage process [None]

NARRATIVE: CASE EVENT DATE: 20160104
